FAERS Safety Report 5223783-X (Version None)
Quarter: 2007Q1

REPORT INFORMATION
  Report Type: 
  Country: None (occurrence: None)
  Receive Date: 20070130
  Receipt Date: 20070118
  Transmission Date: 20070707
  Serious: Yes (Other)
  Sender: FDA-Public Use
  Company Number: PHBS2007BE01148

PATIENT
  Age: 55 Year
  Sex: Female
  Weight: 47 kg

DRUGS (3)
  1. ZOMETA [Suspect]
     Indication: METASTASES TO BONE
     Dosage: 4 MG, MONTHLY
     Route: 042
     Dates: start: 20020903, end: 20050928
  2. TAXOTERE [Concomitant]
     Dosage: 100 MG/M2, UNK
     Route: 065
  3. XELODA [Concomitant]
     Route: 065

REACTIONS (2)
  - OSTEONECROSIS [None]
  - TOOTH EXTRACTION [None]
